FAERS Safety Report 8383572-4 (Version None)
Quarter: 2012Q2

REPORT INFORMATION
  Report Type: 
  Country: None (occurrence: None)
  Receive Date: 20120524
  Receipt Date: 20120517
  Transmission Date: 20120825
  Serious: No
  Sender: FDA-Public Use
  Company Number: US-BAYER-2012-049791

PATIENT
  Age: 69 Year
  Sex: Female
  Weight: 49 kg

DRUGS (4)
  1. NAPROXEN SODIUM [Suspect]
     Indication: BACK PAIN
     Dosage: 1 TABLET USED ONLY ONE TIME - 100 COUNT
     Route: 048
     Dates: start: 20120517, end: 20120517
  2. ANTIHYPERTENSIVES [Concomitant]
  3. TRIAMTERENE [Concomitant]
  4. LOSARTAN POTASSIUM [Concomitant]

REACTIONS (2)
  - FEELING OF RELAXATION [None]
  - FEELING ABNORMAL [None]
